FAERS Safety Report 20470678 (Version 6)
Quarter: 2022Q4

REPORT INFORMATION
  Report Type: Report from Study
  Country: AR (occurrence: AR)
  Receive Date: 20220214
  Receipt Date: 20221010
  Transmission Date: 20230113
  Serious: Yes (Hospitalization, Other)
  Sender: FDA-Public Use
  Company Number: AR-NOVARTISPH-NVSC2022AR029737

PATIENT
  Sex: Female

DRUGS (4)
  1. KISQALI [Suspect]
     Active Substance: RIBOCICLIB
     Indication: Breast cancer metastatic
     Dosage: 600 MG, QD
     Route: 048
     Dates: start: 20220123, end: 20220204
  2. KISQALI [Suspect]
     Active Substance: RIBOCICLIB
     Dosage: 600 MG, QD
     Route: 048
     Dates: start: 20220123
  3. KISQALI [Suspect]
     Active Substance: RIBOCICLIB
     Dosage: 400 MG, QD
     Route: 065
  4. KISQALI [Suspect]
     Active Substance: RIBOCICLIB
     Dosage: 200 MG, BID
     Route: 065

REACTIONS (19)
  - Spinal cord neoplasm [Unknown]
  - Thrombosis [Unknown]
  - Metastases to spine [Unknown]
  - Metastases to liver [Unknown]
  - Lung disorder [Unknown]
  - Pulmonary embolism [Unknown]
  - White blood cell count decreased [Unknown]
  - Nosocomial infection [Unknown]
  - Red blood cell count decreased [Unknown]
  - Fracture [Unknown]
  - Pathological fracture [Unknown]
  - Anaemia [Unknown]
  - Decreased immune responsiveness [Unknown]
  - Cough [Unknown]
  - Alopecia [Unknown]
  - Tongue blistering [Unknown]
  - Abdominal discomfort [Unknown]
  - Illness [Unknown]
  - Nausea [Unknown]

NARRATIVE: CASE EVENT DATE: 20220101
